FAERS Safety Report 9720159 (Version 2)
Quarter: 2013Q4

REPORT INFORMATION
  Report Type: Spontaneous
  Country: US (occurrence: US)
  Receive Date: 20131129
  Receipt Date: 20131206
  Transmission Date: 20140711
  Serious: Yes (Other)
  Sender: FDA-Public Use
  Company Number: US-ROCHE-1306845

PATIENT
  Age: 76 Year
  Sex: Female
  Weight: 74.91 kg

DRUGS (3)
  1. XELODA [Suspect]
     Indication: BREAST CANCER
     Dosage: DAY 1-14, EVERY 28 DAYS
     Route: 048
     Dates: start: 201306, end: 20131004
  2. XELODA [Suspect]
     Dosage: 1+14 9 3-4 WEEKS
     Route: 048
     Dates: start: 20130708, end: 20131004
  3. IXABEPILONE [Concomitant]
     Indication: BREAST CANCER
     Route: 042
     Dates: start: 20130708, end: 201307

REACTIONS (7)
  - Palmar-plantar erythrodysaesthesia syndrome [Recovered/Resolved]
  - Fatigue [Recovered/Resolved]
  - Diarrhoea [Recovered/Resolved]
  - White blood cell count decreased [Recovered/Resolved]
  - Haemoglobin decreased [Recovered/Resolved]
  - Platelet count decreased [Recovered/Resolved]
  - Malignant neoplasm progression [Unknown]
